FAERS Safety Report 24265556 (Version 2)
Quarter: 2024Q3

REPORT INFORMATION
  Report Type: Report from Study
  Country: GB (occurrence: GB)
  Receive Date: 20240829
  Receipt Date: 20240902
  Transmission Date: 20241016
  Serious: Yes (Other)
  Sender: ABBVIE
  Company Number: GB-ABBVIE-5887481

PATIENT
  Sex: Male

DRUGS (1)
  1. SKYRIZI [Suspect]
     Active Substance: RISANKIZUMAB-RZAA
     Indication: Psoriasis
     Dosage: FORM STRENGTH: 150 MILLIGRAM
     Route: 058
     Dates: start: 20231117

REACTIONS (2)
  - Hepatic cyst [Unknown]
  - Volvulus [Unknown]
